FAERS Safety Report 8806485 (Version 1)
Quarter: 2012Q4

REPORT INFORMATION
  Report Type: Spontaneous
  Country: US (occurrence: None)
  Receive Date: 20120918
  Receipt Date: 20120918
  Transmission Date: 20130627
  Serious: Yes (Hospitalization)
  Sender: FDA-Public Use
  Company Number: TPA2012A06494

PATIENT
  Sex: Male

DRUGS (1)
  1. EDARBI [Suspect]

REACTIONS (1)
  - Blood pressure systolic decreased [None]
